FAERS Safety Report 24017158 (Version 1)
Quarter: 2024Q2

REPORT INFORMATION
  Report Type: Report from Study
  Country: US (occurrence: US)
  Receive Date: 20240627
  Receipt Date: 20240627
  Transmission Date: 20240716
  Serious: Yes (Hospitalization)
  Sender: FDA-Public Use
  Company Number: US-HORIZON THERAPEUTICS-HZN-2023-005592

PATIENT
  Age: 65 Year
  Sex: Female
  Weight: 71.202 kg

DRUGS (30)
  1. TEPEZZA [Suspect]
     Active Substance: TEPROTUMUMAB-TRBW
     Indication: Toxic goitre
     Dosage: FIRST INFUSION UNK, EVERY 3 WEEKS
     Route: 042
     Dates: start: 20230602
  2. TEPEZZA [Suspect]
     Active Substance: TEPROTUMUMAB-TRBW
     Indication: Endocrine ophthalmopathy
     Dosage: 1424 MG, EVERY 3 WEEKS (DILUTE TEPEZZA WITH 10ML STERILE WATER. 29.9ML IS EQUAL TO 1424MG. WITHDRAW
     Route: 042
     Dates: start: 2023
  3. TEPEZZA [Suspect]
     Active Substance: TEPROTUMUMAB-TRBW
     Dosage: 5TH INFUSION, EVERY 3 WEEKS
     Route: 042
     Dates: start: 20230930
  4. TEPEZZA [Suspect]
     Active Substance: TEPROTUMUMAB-TRBW
     Dosage: 1424 MG, EVERY 3 WEEKS (DILUTE TEPEZZA WITH 10ML STERILE WATER. 29.9ML IS EQUAL TO 1424MG. WITHDRAW
     Route: 042
     Dates: start: 2023
  5. TEPEZZA [Suspect]
     Active Substance: TEPROTUMUMAB-TRBW
     Dosage: LAST DOSE PRIOR TO THE EVENTS, OVER 60-90 MINUTES
     Route: 042
     Dates: start: 20231011
  6. TEPEZZA [Suspect]
     Active Substance: TEPROTUMUMAB-TRBW
     Dosage: 1424 MG, EVERY 3 WEEKS
     Route: 042
  7. SODIUM CHLORIDE [Concomitant]
     Active Substance: SODIUM CHLORIDE
  8. STERILE WATER [Concomitant]
     Active Substance: WATER
  9. SODIUM CHLORIDE [Concomitant]
     Active Substance: SODIUM CHLORIDE
  10. LEVOTHYROXINE SODIUM [Concomitant]
     Active Substance: LEVOTHYROXINE SODIUM
     Dosage: 100 UG TABLET
  11. DOXEPIN HCL [Concomitant]
     Active Substance: DOXEPIN HYDROCHLORIDE
     Dosage: 100 MG
  12. AMBIEN [Concomitant]
     Active Substance: ZOLPIDEM TARTRATE
     Dosage: 10 MG TABLET
  13. VITAMIN D2 [Concomitant]
     Active Substance: ERGOCALCIFEROL
     Dosage: 10 UG TABLET
  14. GAMMAGARD [Concomitant]
     Active Substance: HUMAN IMMUNOGLOBULIN G
     Dosage: LIQUID 10%VIAL
  15. CEFDINIR [Concomitant]
     Active Substance: CEFDINIR
     Dosage: 300 MG CAPSULE
  16. HYDROCODONE BITARTRATE AND ACETAMINOPHEN [Concomitant]
     Active Substance: ACETAMINOPHEN\HYDROCODONE BITARTRATE
  17. OXYCODONE AND ACETAMINOPHEN [Concomitant]
     Active Substance: ACETAMINOPHEN\OXYCODONE HYDROCHLORIDE
  18. CLARITIN [Concomitant]
     Active Substance: LORATADINE
     Dosage: 10 MG TABLET
     Route: 048
  19. POTASSIUM [Concomitant]
     Active Substance: POTASSIUM
     Dosage: 595 (99) MG TABLET
  20. NEXIUM 24HR [Concomitant]
     Active Substance: ESOMEPRAZOLE MAGNESIUM
     Dosage: 20 MG TABLET
  21. ALBUTEROL SULFATE [Concomitant]
     Active Substance: ALBUTEROL SULFATE
     Dosage: 90 MG
  22. CLARITIN [Concomitant]
     Active Substance: LORATADINE
     Dosage: 10 MG
     Route: 048
  23. LATANOPROST [Concomitant]
     Active Substance: LATANOPROST
     Dosage: 0.005 % DROPS, INSTILL ONE DROP INTO BOTH EYES EVERY EVENING AS DIRECTED
     Route: 065
     Dates: start: 20221212
  24. LUMIGAN [Concomitant]
     Active Substance: BIMATOPROST
     Dosage: 0.01 % DROPS, INSTILL 1 DROP INTO BOTH EYES EVERY EVENING
     Route: 065
     Dates: start: 20221202
  25. MIEBO [Concomitant]
     Active Substance: PERFLUOROHEXYLOCTANE
     Dosage: INSTILL 1 DROP INTO BOTH EYES FOUR TIMES A DAY, Q1H
     Route: 065
     Dates: start: 20231020
  26. NEXIUM 24HR [Concomitant]
     Active Substance: ESOMEPRAZOLE MAGNESIUM
     Dosage: 40 MG, DELAYED RELEASED
     Route: 048
  27. OXYCODONE [Concomitant]
     Active Substance: OXYCODONE\OXYCODONE HYDROCHLORIDE
     Dosage: 20 MG
     Route: 048
  28. SYNTHROID [Concomitant]
     Active Substance: LEVOTHYROXINE SODIUM
     Dosage: 100 UG
     Route: 048
  29. VICODIN HP [Concomitant]
     Active Substance: ACETAMINOPHEN\HYDROCODONE BITARTRATE
     Dosage: 10-300 MG
     Route: 065
  30. VITAMIN D [Concomitant]
     Active Substance: VITAMIN D NOS
     Dosage: 2000 IU
     Route: 048

REACTIONS (12)
  - Amnesia [Unknown]
  - Sinusitis [Recovered/Resolved]
  - Tremor [Unknown]
  - Cognitive disorder [Unknown]
  - Fatigue [Recovering/Resolving]
  - Weight decreased [Unknown]
  - Illness [Unknown]
  - Mental disorder [Unknown]
  - Paranoia [Unknown]
  - Feeling abnormal [Unknown]
  - Ear pain [Unknown]
  - Mood altered [Recovering/Resolving]

NARRATIVE: CASE EVENT DATE: 20230101
